FAERS Safety Report 4576561-9 (Version None)
Quarter: 2005Q1

REPORT INFORMATION
  Report Type: 
  Country: None (occurrence: None)
  Receive Date: 20050119
  Receipt Date: 20040913
  Transmission Date: 20050727
  Serious: Yes (Hospitalization, Disabling)
  Sender: FDA-Public Use
  Company Number: A03200302337

PATIENT
  Age: 49 Year
  Sex: Male

DRUGS (11)
  1. PLAVIX [Suspect]
     Indication: MYOCARDIAL INFARCTION
     Dosage: 75 MG QD - ORAL
     Route: 048
     Dates: start: 20020605, end: 20020718
  2. PLAVIX [Suspect]
     Indication: STENT PLACEMENT
     Dosage: 75 MG QD - ORAL
     Route: 048
     Dates: start: 20020605, end: 20020718
  3. COUMADIN [Suspect]
     Indication: MYOCARDIAL INFARCTION
     Dosage: 7.5 MG QD - ORAL
     Route: 048
     Dates: start: 20020605, end: 20020718
  4. COUMADIN [Suspect]
     Indication: STENT PLACEMENT
     Dosage: 7.5 MG QD - ORAL
     Route: 048
     Dates: start: 20020605, end: 20020718
  5. ACETYLSALICYLIC ACID [Concomitant]
  6. RAMIPRIL [Concomitant]
  7. METOPROLOL TARTRATE [Concomitant]
  8. MULTI-VITAMINS [Concomitant]
  9. SERTRALINE HYDROCHLORIDE [Concomitant]
  10. OXCARBAZEPINE [Concomitant]
  11. PHENYTOIN SODIUM [Concomitant]

REACTIONS (6)
  - BLINDNESS TRANSIENT [None]
  - CEREBRAL HAEMORRHAGE [None]
  - EPISTAXIS [None]
  - HEMIPLEGIA [None]
  - INTERNATIONAL NORMALISED RATIO INCREASED [None]
  - MOUTH HAEMORRHAGE [None]
